FAERS Safety Report 7142114-1 (Version None)
Quarter: 2010Q4

REPORT INFORMATION
  Report Type: 
  Country: None (occurrence: None)
  Receive Date: 20101207
  Receipt Date: 20101203
  Transmission Date: 20110411
  Serious: Yes (Hospitalization)
  Sender: FDA-Public Use
  Company Number: US-B.I. PHARMACEUTICALS,INC./RIDGEFIELD-2010-BP-12542BP

PATIENT
  Sex: Female

DRUGS (4)
  1. ZANTAC 150 [Suspect]
     Indication: GASTROOESOPHAGEAL REFLUX DISEASE
     Dosage: 600 MG
     Route: 048
     Dates: start: 20080101
  2. ZANTAC 150 [Suspect]
     Dosage: 300 MG
     Route: 048
     Dates: start: 20070101, end: 20080101
  3. XANAX [Concomitant]
     Indication: ANXIETY
  4. AMBIEN [Concomitant]
     Indication: SLEEP DISORDER

REACTIONS (6)
  - CHEST PAIN [None]
  - DRUG INEFFECTIVE [None]
  - DYSPEPSIA [None]
  - MUSCULOSKELETAL PAIN [None]
  - PAIN IN EXTREMITY [None]
  - PANIC ATTACK [None]
